FAERS Safety Report 24266650 (Version 3)
Quarter: 2024Q3

REPORT INFORMATION
  Report Type: Spontaneous
  Country: GB (occurrence: GB)
  Receive Date: 20240830
  Receipt Date: 20240902
  Transmission Date: 20241016
  Serious: Yes (Other)
  Sender: CELLTRION
  Company Number: GB-CELLTRION INC.-2024GB020555

PATIENT

DRUGS (1)
  1. YUFLYMA [Suspect]
     Active Substance: ADALIMUMAB-AATY
     Indication: Rheumatoid arthritis
     Dosage: 40MG PEN
     Route: 058
     Dates: start: 202404

REACTIONS (5)
  - Surgery [Unknown]
  - Antibiotic therapy [Unknown]
  - Malaise [Unknown]
  - Nausea [Unknown]
  - Intentional dose omission [Unknown]
